FAERS Safety Report 4351018-9 (Version None)
Quarter: 2004Q2

REPORT INFORMATION
  Report Type: 
  Country: None (occurrence: None)
  Receive Date: 20040427
  Receipt Date: 20040413
  Transmission Date: 20050107
  Serious: Yes (Other)
  Sender: FDA-Public Use
  Company Number: US073275

PATIENT
  Age: 65 Year
  Sex: Male

DRUGS (5)
  1. ENBREL [Suspect]
     Dates: start: 20040121
  2. CELECOXIB [Concomitant]
  3. ACETAMINOPHEN W/ CODEINE [Concomitant]
  4. OMEPRAZOLE [Concomitant]
  5. METHYLPREDNISOLONE [Concomitant]

REACTIONS (1)
  - MYOCARDIAL INFARCTION [None]
